FAERS Safety Report 15430128 (Version 1)
Quarter: 2018Q3

REPORT INFORMATION
  Report Type: Spontaneous
  Country: GB (occurrence: GB)
  Receive Date: 20180926
  Receipt Date: 20180926
  Transmission Date: 20181010
  Serious: Yes (Hospitalization)
  Sender: FDA-Public Use
  Company Number: GB-MYLANLABS-2018M1070656

PATIENT
  Age: 29 Year
  Sex: Male

DRUGS (2)
  1. TRAMADOL. [Interacting]
     Active Substance: TRAMADOL
     Indication: ANALGESIC THERAPY
     Dosage: 100 MG
     Route: 065
  2. SERTRALINE [Suspect]
     Active Substance: SERTRALINE HYDROCHLORIDE
     Indication: ANXIETY
     Dosage: 50 MG
     Route: 065

REACTIONS (3)
  - Drug interaction [Recovering/Resolving]
  - Serotonin syndrome [Recovering/Resolving]
  - Thyroiditis [Recovered/Resolved]
